FAERS Safety Report 10649782 (Version 1)
Quarter: 2014Q4

REPORT INFORMATION
  Report Type: Spontaneous
  Country: TW (occurrence: TW)
  Receive Date: 20141212
  Receipt Date: 20141212
  Transmission Date: 20150529
  Serious: Yes (Death)
  Sender: FDA-Public Use
  Company Number: TW-BAXTER-2014BAX071972

PATIENT
  Age: 19 Year
  Sex: Male

DRUGS (16)
  1. KIOVIG [Suspect]
     Active Substance: HUMAN IMMUNOGLOBULIN G
     Indication: HISTIOCYTOSIS HAEMATOPHAGIC
     Dosage: WAS ALSO PRIVIDED IN THE 6TH AND 7TH DAYS
     Route: 042
  2. PREDNISOLONE. [Suspect]
     Active Substance: PREDNISOLONE
     Indication: GLOMERULONEPHRITIS
  3. METHYLPREDNISOLONE. [Suspect]
     Active Substance: METHYLPREDNISOLONE
     Indication: HISTIOCYTOSIS HAEMATOPHAGIC
     Route: 065
  4. CYCLOSPORINE. [Suspect]
     Active Substance: CYCLOSPORINE
     Indication: GLOMERULONEPHRITIS
  5. HEPARIN [Suspect]
     Active Substance: HEPARIN SODIUM
     Indication: HISTIOCYTOSIS HAEMATOPHAGIC
     Route: 065
  6. OXACILLIN [Suspect]
     Active Substance: OXACILLIN SODIUM
     Indication: CELLULITIS
     Route: 042
  7. DAPTOMYCIN. [Suspect]
     Active Substance: DAPTOMYCIN
     Indication: PANCYTOPENIA
  8. CYCLOSPORINE. [Suspect]
     Active Substance: CYCLOSPORINE
     Indication: NEPHROTIC SYNDROME
     Route: 065
  9. MYCOPHENOLATE [Suspect]
     Active Substance: MYCOPHENOLIC ACID
     Indication: NEPHROTIC SYNDROME
     Route: 065
  10. BUMINATE [Suspect]
     Active Substance: ALBUMIN (HUMAN)
     Indication: HISTIOCYTOSIS HAEMATOPHAGIC
     Route: 065
  11. PREDNISOLONE. [Suspect]
     Active Substance: PREDNISOLONE
     Indication: NEPHROTIC SYNDROME
     Route: 048
  12. IMIPENEM [Suspect]
     Active Substance: IMIPENEM
     Indication: SEPTIC SHOCK
     Route: 065
  13. DAPTOMYCIN. [Suspect]
     Active Substance: DAPTOMYCIN
     Indication: SEPTIC SHOCK
     Route: 065
  14. KIOVIG [Suspect]
     Active Substance: HUMAN IMMUNOGLOBULIN G
     Indication: OFF LABEL USE
  15. IMIPENEM [Suspect]
     Active Substance: IMIPENEM
     Indication: PANCYTOPENIA
  16. MYCOPHENOLATE [Suspect]
     Active Substance: MYCOPHENOLIC ACID
     Indication: GLOMERULONEPHRITIS

REACTIONS (1)
  - Histiocytosis haematophagic [Fatal]
